FAERS Safety Report 9153365 (Version 1)
Quarter: 2013Q1

REPORT INFORMATION
  Report Type: Spontaneous
  Country: DK (occurrence: None)
  Receive Date: 20130204
  Receipt Date: 20130204
  Transmission Date: 20140127
  Serious: Yes (Other)
  Sender: FDA-Public Use
  Company Number: 2013MA000836

PATIENT
  Sex: Female

DRUGS (3)
  1. FEVERALL [Suspect]
     Indication: PRODUCT USED FOR UNKNOWN INDICATION
  2. AMOXICILLIN (AMOXICILLIN) [Suspect]
  3. KETOPROFEN [Suspect]

REACTIONS (2)
  - Face oedema [None]
  - Myalgia [None]
